FAERS Safety Report 10384922 (Version 7)
Quarter: 2019Q1

REPORT INFORMATION
  Report Type: Report from Study
  Country: US (occurrence: US)
  Receive Date: 20140814
  Receipt Date: 20190117
  Transmission Date: 20190417
  Serious: Yes (Hospitalization, Other)
  Sender: FDA-Public Use
  Company Number: US-SA-2014SA049915

PATIENT
  Age: 60 Year
  Sex: Female

DRUGS (5)
  1. TERIFLUNOMIDE. [Suspect]
     Active Substance: TERIFLUNOMIDE
     Indication: MULTIPLE SCLEROSIS
     Dosage: 14 MG,QD
     Route: 048
     Dates: start: 20140405
  2. OXCARBAZEPINE. [Suspect]
     Active Substance: OXCARBAZEPINE
  3. TERIFLUNOMIDE. [Suspect]
     Active Substance: TERIFLUNOMIDE
     Dosage: 14 MG,QD
     Route: 048
     Dates: start: 201412
  4. TERIFLUNOMIDE. [Suspect]
     Active Substance: TERIFLUNOMIDE
     Dosage: 7 MG,QD
     Route: 048
  5. SPIRONOLACTONE. [Suspect]
     Active Substance: SPIRONOLACTONE

REACTIONS (36)
  - Asthma [Recovering/Resolving]
  - Dyspnoea [Recovering/Resolving]
  - Joint swelling [Unknown]
  - Pain in extremity [Unknown]
  - Madarosis [Unknown]
  - Hearing aid user [Unknown]
  - Bone erosion [Unknown]
  - Sepsis [Unknown]
  - Burning sensation [Unknown]
  - Pruritus [Unknown]
  - Hepatic enzyme increased [Recovering/Resolving]
  - Headache [Unknown]
  - Gait disturbance [Unknown]
  - Psoriasis [Unknown]
  - Temperature intolerance [Unknown]
  - Abdominal pain upper [Recovering/Resolving]
  - Meniscus injury [Unknown]
  - Hyperhidrosis [Unknown]
  - Diarrhoea [Not Recovered/Not Resolved]
  - Condition aggravated [Unknown]
  - Feeling abnormal [Unknown]
  - Fibromyalgia [Unknown]
  - Myalgia [Unknown]
  - Pain [Unknown]
  - Blood glucose increased [Unknown]
  - Dyspnoea [Unknown]
  - Asthenia [Unknown]
  - Balance disorder [Not Recovered/Not Resolved]
  - Rash macular [Unknown]
  - Insomnia [Unknown]
  - Ear infection [Unknown]
  - Visual impairment [Not Recovered/Not Resolved]
  - Muscle tightness [Unknown]
  - Multiple sclerosis relapse [Unknown]
  - Bradykinesia [Unknown]
  - Unevaluable event [Unknown]

NARRATIVE: CASE EVENT DATE: 2014
